FAERS Safety Report 25471891 (Version 1)
Quarter: 2025Q2

REPORT INFORMATION
  Report Type: Spontaneous
  Country: CN (occurrence: CN)
  Receive Date: 20250624
  Receipt Date: 20250624
  Transmission Date: 20250716
  Serious: Yes (Other)
  Sender: BAXTER
  Company Number: None

PATIENT
  Age: 39 Year
  Sex: Female
  Weight: 65 kg

DRUGS (9)
  1. CYCLOPHOSPHAMIDE [Suspect]
     Active Substance: CYCLOPHOSPHAMIDE
     Indication: B precursor type acute leukaemia
     Dosage: 1.000000 G, QD (WITH NS 250ML)
     Route: 041
     Dates: start: 20250523, end: 20250523
  2. SODIUM CHLORIDE [Suspect]
     Active Substance: SODIUM CHLORIDE
     Dosage: 250 ML, QD, WITH CYCLOPHOSPHAMIDE
     Route: 041
     Dates: start: 20250523, end: 20250523
  3. SODIUM CHLORIDE [Suspect]
     Active Substance: SODIUM CHLORIDE
     Dosage: 100 ML, QD, WITH VINORELBINE TARTRATE
     Route: 041
     Dates: start: 20250523, end: 20250523
  4. SODIUM CHLORIDE [Suspect]
     Active Substance: SODIUM CHLORIDE
     Dosage: 10 ML, WITH IDARUBICIN HYDROCHLORIDE VIA MICROPUMP FOR 10MIN
     Route: 065
     Dates: start: 20250523, end: 20250525
  5. VINORELBINE TARTRATE [Suspect]
     Active Substance: VINORELBINE TARTRATE
     Indication: B precursor type acute leukaemia
     Dosage: 20.00000 MG, QD (ONCE DAILY), TRADE NAME: GAINUO, (WITH NS 100ML)
     Route: 041
     Dates: start: 20250523, end: 20250523
  6. MESNA [Suspect]
     Active Substance: MESNA
     Indication: Prophylaxis
     Dosage: 0.400000 G, QD (ONCE DAILY)
     Route: 041
     Dates: start: 20250523, end: 20250523
  7. MESNA [Suspect]
     Active Substance: MESNA
     Indication: Urinary tract toxicity
  8. PEGASPARGASE [Suspect]
     Active Substance: PEGASPARGASE
     Indication: B precursor type acute leukaemia
     Dosage: 3750.000 IU, QD (VIA INTRAMUSCULAR INJECTION)
     Route: 030
     Dates: start: 20250523, end: 20250523
  9. IDARUBICIN HYDROCHLORIDE [Suspect]
     Active Substance: IDARUBICIN HYDROCHLORIDE
     Indication: B precursor type acute leukaemia
     Dosage: 10.00000 MG, QD (ROUTE: INJECTION IN PUMP), (WITH NS 10ML VIA MICROPUMP FOR 10MIN)
     Route: 065
     Dates: start: 20250523, end: 20250525

REACTIONS (5)
  - Coagulation test abnormal [Recovering/Resolving]
  - White blood cell count decreased [Recovering/Resolving]
  - Neutrophil count decreased [Recovering/Resolving]
  - Abdominal pain [Recovering/Resolving]
  - Vomiting [Recovered/Resolved]

NARRATIVE: CASE EVENT DATE: 20250529
